FAERS Safety Report 4831785-8 (Version None)
Quarter: 2005Q4

REPORT INFORMATION
  Report Type: 
  Country: None (occurrence: None)
  Receive Date: 20051118
  Receipt Date: 20050718
  Transmission Date: 20060501
  Serious: Yes (Hospitalization, Disabling)
  Sender: FDA-Public Use
  Company Number: US-MERCK-0507USA02341

PATIENT
  Age: 39 Year
  Sex: Male
  Weight: 98 kg

DRUGS (4)
  1. VIOXX [Suspect]
     Indication: ARTHRITIS
     Route: 048
     Dates: start: 20010414, end: 20030801
  2. ROXICODONE [Concomitant]
     Route: 065
  3. IBUPROFEN [Concomitant]
     Route: 065
  4. OXYCODONE AND ACETAMINOPHEN [Concomitant]
     Route: 065

REACTIONS (4)
  - CHEST PAIN [None]
  - DEPRESSION [None]
  - JOINT INJURY [None]
  - MYOCARDIAL INFARCTION [None]
